FAERS Safety Report 15378697 (Version 1)
Quarter: 2018Q3

REPORT INFORMATION
  Report Type: Spontaneous
  Country: PT (occurrence: PT)
  Receive Date: 20180913
  Receipt Date: 20180913
  Transmission Date: 20181010
  Serious: Yes (Hospitalization)
  Sender: FDA-Public Use
  Company Number: PT-ALLERGAN-1844549US

PATIENT
  Age: 37 Year
  Sex: Female

DRUGS (3)
  1. FOSFOMYCIN TROMETHAMINE ? BP [Suspect]
     Active Substance: FOSFOMYCIN TROMETHAMINE
     Indication: CYSTITIS
     Dosage: UNK, UNKNOWN
     Route: 065
  2. AMOXICILLIN+CLAVULANIC ACID [Suspect]
     Active Substance: AMOXICILLIN\CLAVULANIC ACID
     Indication: CYSTITIS
     Dosage: UNK, UNKNOWN
     Route: 065
  3. BUTYLSCOPOLAMINE [Suspect]
     Active Substance: BUTYLSCOPOLAMINE
     Indication: CYSTITIS
     Dosage: UNK, UNKNOWN
     Route: 065

REACTIONS (11)
  - Pyelonephritis acute [Unknown]
  - Sepsis [Unknown]
  - Back pain [Unknown]
  - Drug ineffective [Unknown]
  - Surgical failure [Unknown]
  - Calculus urinary [Unknown]
  - Pyrexia [Unknown]
  - Nitrituria [Unknown]
  - Murphy^s sign positive [Unknown]
  - Hydronephrosis [Unknown]
  - Leukocyturia [Unknown]

NARRATIVE: CASE EVENT DATE: 201510
